FAERS Safety Report 19808707 (Version 1)
Quarter: 2021Q3

REPORT INFORMATION
  Report Type: Report from Study
  Country: CA (occurrence: CA)
  Receive Date: 20210908
  Receipt Date: 20210908
  Transmission Date: 20211014
  Serious: Yes (Other)
  Sender: FDA-Public Use
  Company Number: CA-ASTRAZENECA-2021A708150

PATIENT
  Sex: Female

DRUGS (7)
  1. MONTELUKAST [Concomitant]
     Active Substance: MONTELUKAST SODIUM
  2. INCRUSE ELLLIPTA [Concomitant]
     Dosage: 62.5MCG 1 INHALATION ONCE DAILY
  3. FASENRA [Suspect]
     Active Substance: BENRALIZUMAB
     Indication: ASTHMA
     Dosage: 30.0MG UNKNOWN
     Route: 058
     Dates: start: 20210316
  4. ARNUITY ELLIPTA [Concomitant]
     Active Substance: FLUTICASONE FUROATE
     Dosage: 200.0MG AS REQUIRED
  5. PREDNISONE. [Concomitant]
     Active Substance: PREDNISONE
  6. BRICANYL [Concomitant]
     Active Substance: TERBUTALINE SULFATE
     Dosage: 0.5MG AS REQUIRED
  7. BREO ELLIPTA [Concomitant]
     Active Substance: FLUTICASONE FUROATE\VILANTEROL TRIFENATATE
     Dosage: 200MCG 1 INHALATION ONCE DAILY

REACTIONS (4)
  - Dizziness [Unknown]
  - Palpitations [Unknown]
  - Heart rate increased [Unknown]
  - Hypertension [Not Recovered/Not Resolved]
